FAERS Safety Report 7434878-4 (Version None)
Quarter: 2011Q2

REPORT INFORMATION
  Report Type: 
  Country: None (occurrence: None)
  Receive Date: 20110425
  Receipt Date: 20110328
  Transmission Date: 20111010
  Serious: No
  Sender: FDA-Public Use
  Company Number: US-B.I. PHARMACEUTICALS,INC./RIDGEFIELD-2011-BP-09422BP

PATIENT
  Sex: Female

DRUGS (3)
  1. ADVAIR DISKUS 100/50 [Suspect]
     Indication: BRONCHITIS CHRONIC
     Route: 055
     Dates: start: 20100101, end: 20100101
  2. SPIRIVA [Suspect]
     Indication: BRONCHITIS CHRONIC
     Dosage: 18 MCG
     Route: 055
     Dates: start: 20100101, end: 20100101
  3. ALBUTEROL [Suspect]
     Indication: BRONCHITIS CHRONIC
     Route: 055
     Dates: start: 20100101, end: 20100101

REACTIONS (2)
  - DYSPNOEA [None]
  - DIZZINESS [None]
